FAERS Safety Report 9187157 (Version 1)
Quarter: 2013Q1

REPORT INFORMATION
  Report Type: Spontaneous
  Country: US (occurrence: US)
  Receive Date: 20130325
  Receipt Date: 20130325
  Transmission Date: 20140127
  Serious: No
  Sender: FDA-Public Use
  Company Number: US-PFIZER INC-2013095292

PATIENT
  Age: 59 Year
  Sex: Female

DRUGS (3)
  1. LIPITOR [Suspect]
     Indication: BLOOD CHOLESTEROL INCREASED
     Dosage: UNK
     Route: 048
  2. LIPITOR [Suspect]
     Dosage: 40 MG, DAILY
     Route: 048
  3. LISINOPRIL [Concomitant]
     Dosage: UNK

REACTIONS (5)
  - Drug ineffective [Unknown]
  - Fatigue [Unknown]
  - Muscular weakness [Unknown]
  - Musculoskeletal discomfort [Unknown]
  - Musculoskeletal chest pain [Unknown]
